FAERS Safety Report 20675363 (Version 1)
Quarter: 2022Q2

REPORT INFORMATION
  Report Type: Spontaneous
  Country: DZ (occurrence: DZ)
  Receive Date: 20220405
  Receipt Date: 20220405
  Transmission Date: 20220721
  Serious: Yes (Death, Other)
  Sender: FDA-Public Use
  Company Number: DZ-BIOVITRUM-2020DZ1159

PATIENT
  Age: 0 Year
  Sex: Male
  Weight: 8 kg

DRUGS (2)
  1. ORFADIN [Suspect]
     Active Substance: NITISINONE
     Indication: Tyrosinaemia
  2. ZINC [Concomitant]
     Active Substance: ZINC

REACTIONS (2)
  - Death [Fatal]
  - Dermatitis diaper [Unknown]

NARRATIVE: CASE EVENT DATE: 20191001
